FAERS Safety Report 13737556 (Version 2)
Quarter: 2017Q3

REPORT INFORMATION
  Report Type: Spontaneous
  Country: CN (occurrence: CN)
  Receive Date: 20170710
  Receipt Date: 20170720
  Transmission Date: 20171127
  Serious: Yes (Hospitalization, Other)
  Sender: FDA-Public Use
  Company Number: CN-GILEAD-2017-0281846

PATIENT
  Age: 50 Year
  Sex: Male

DRUGS (8)
  1. ADEFOVIR DIPIVOXIL. [Suspect]
     Active Substance: ADEFOVIR DIPIVOXIL
     Indication: HEPATITIS B
     Dosage: UNK UNK, QD
     Route: 065
  2. HEPSERA [Suspect]
     Active Substance: ADEFOVIR DIPIVOXIL
     Indication: HEPATITIS B
     Route: 048
  3. HEPTODIN [Suspect]
     Active Substance: LAMIVUDINE
     Dosage: 1 DF, QD, TABLET
     Route: 048
  4. SILIBENE                           /01131702/ [Suspect]
     Active Substance: MILK THISTLE
     Indication: PROPHYLAXIS
     Dosage: UNK, CAPSULE
     Route: 048
  5. HEPTODIN [Suspect]
     Active Substance: LAMIVUDINE
     Dosage: INTERNAL PACKAGE BATCH NO
     Route: 048
  6. HEPTODIN [Suspect]
     Active Substance: LAMIVUDINE
     Dosage: EXTERNAL PACKAGE BATCH NO.
     Route: 048
  7. HEPTODIN [Suspect]
     Active Substance: LAMIVUDINE
     Indication: HEPATITIS B
     Dosage: UNK UNK, QD
     Route: 048
  8. GLYCYRRHIZA GLABRA [Suspect]
     Active Substance: GLYCYRRHIZA GLABRA
     Indication: PRODUCT USED FOR UNKNOWN INDICATION
     Dosage: UNK, TABLET
     Route: 048

REACTIONS (6)
  - Gastric haemorrhage [Recovered/Resolved]
  - Epigastric discomfort [Recovered/Resolved]
  - Product counterfeit [Unknown]
  - Gastric ulcer [Unknown]
  - Suspected counterfeit product [Unknown]
  - Headache [Recovered/Resolved]

NARRATIVE: CASE EVENT DATE: 201612
